FAERS Safety Report 10283303 (Version 1)
Quarter: 2014Q3

REPORT INFORMATION
  Report Type: Spontaneous
  Country: US (occurrence: None)
  Receive Date: 20140703
  Receipt Date: 20140703
  Transmission Date: 20150326
  Serious: Yes (Other)
  Sender: FDA-Public Use
  Company Number: UNT-2014-002071

PATIENT
  Age: 52 Year
  Sex: Female
  Weight: 76.2 kg

DRUGS (2)
  1. COUMADIN /00014802/ (WARFARIN SODIUM) [Concomitant]
  2. REMODULIN [Suspect]
     Active Substance: TREPROSTINIL
     Indication: COR PULMONALE CHRONIC
     Route: 042
     Dates: start: 20100511

REACTIONS (3)
  - Device malfunction [None]
  - Visual impairment [None]
  - Migraine [None]
